APPROVED DRUG PRODUCT: E.E.S.
Active Ingredient: ERYTHROMYCIN ETHYLSUCCINATE
Strength: EQ 200MG BASE
Dosage Form/Route: TABLET, CHEWABLE;ORAL
Application: N050297 | Product #002
Applicant: AZURITY PHARMACEUTICALS INC
Approved: Approved Prior to Jan 1, 1982 | RLD: No | RS: No | Type: DISCN